FAERS Safety Report 10793533 (Version 3)
Quarter: 2015Q1

REPORT INFORMATION
  Report Type: Report from Study
  Country: US (occurrence: US)
  Receive Date: 20150213
  Receipt Date: 20150227
  Transmission Date: 20150721
  Serious: Yes (Death, Hospitalization)
  Sender: FDA-Public Use
  Company Number: US-PFIZER INC-2015058674

PATIENT
  Age: 70 Year
  Sex: Male
  Weight: 69.9 kg

DRUGS (1)
  1. SUNITINIB MALATE [Suspect]
     Active Substance: SUNITINIB MALATE
     Indication: THYMOMA MALIGNANT
     Dosage: 50 MG, CYCLIC (ONCE A DAY, IN 6-WEEK CYCLES) ON DAYS 1-28
     Route: 048
     Dates: start: 20120912

REACTIONS (1)
  - Cardiac arrest [Fatal]

NARRATIVE: CASE EVENT DATE: 20130214
